FAERS Safety Report 10404743 (Version 2)
Quarter: 2014Q3

REPORT INFORMATION
  Report Type: Report from Study
  Country: IE (occurrence: IE)
  Receive Date: 20140824
  Receipt Date: 20140824
  Transmission Date: 20150326
  Serious: Yes (Other)
  Sender: FDA-Public Use
  Company Number: IE-BRISTOL-MYERS SQUIBB COMPANY-20928685

PATIENT
  Age: 59 Year
  Sex: Female

DRUGS (1)
  1. YERVOY [Suspect]
     Active Substance: IPILIMUMAB
     Dosage: 4INF
     Route: 042
     Dates: start: 20140519, end: 201408

REACTIONS (9)
  - Fatigue [Unknown]
  - Dizziness [Recovered/Resolved]
  - Vomiting [Recovered/Resolved]
  - Hypotension [Recovered/Resolved]
  - Syncope [Recovered/Resolved]
  - Decreased appetite [Unknown]
  - Dysgeusia [Unknown]
  - Diarrhoea [Recovered/Resolved]
  - Pruritus [Recovered/Resolved]

NARRATIVE: CASE EVENT DATE: 20140519
